FAERS Safety Report 7159032-5 (Version None)
Quarter: 2010Q4

REPORT INFORMATION
  Report Type: 
  Country: None (occurrence: None)
  Receive Date: 20101214
  Receipt Date: 20101201
  Transmission Date: 20110411
  Serious: Yes (Other)
  Sender: FDA-Public Use
  Company Number: ZA-PFIZER INC-2010162198

PATIENT
  Sex: Male

DRUGS (3)
  1. DEPO-TESTOSTERONE [Suspect]
     Indication: ANDROGEN DEFICIENCY
     Dosage: 200 MG, MONTHLY
     Dates: start: 20100101
  2. BISOPROLOL [Concomitant]
     Route: 048
  3. LOSARTAN [Concomitant]
     Route: 048

REACTIONS (4)
  - DIZZINESS [None]
  - HAEMOGLOBIN INCREASED [None]
  - HYPERTENSION [None]
  - RED BLOOD CELL COUNT INCREASED [None]
